FAERS Safety Report 24648579 (Version 1)
Quarter: 2024Q4

REPORT INFORMATION
  Report Type: Spontaneous
  Country: US (occurrence: US)
  Receive Date: 20241121
  Receipt Date: 20241121
  Transmission Date: 20250114
  Serious: Yes (Hospitalization)
  Sender: MYLAN
  Company Number: US-MYLANLABS-2024M1104456

PATIENT
  Age: 6 Decade
  Sex: Male

DRUGS (5)
  1. PREDNISONE [Suspect]
     Active Substance: PREDNISONE
     Indication: Enteropathy-associated T-cell lymphoma
     Dosage: UNK, CYCLE (6 CYCLES)
     Route: 065
  2. DOXORUBICIN [Suspect]
     Active Substance: DOXORUBICIN
     Indication: Enteropathy-associated T-cell lymphoma
     Dosage: UNK, CYCLE (6 CYCLES)
     Route: 065
  3. ETOPOSIDE [Suspect]
     Active Substance: ETOPOSIDE
     Indication: Enteropathy-associated T-cell lymphoma
     Dosage: UNK
     Route: 065
  4. CYCLOPHOSPHAMIDE [Suspect]
     Active Substance: CYCLOPHOSPHAMIDE
     Indication: Enteropathy-associated T-cell lymphoma
     Dosage: UNK, CYCLE (6 CYCLES)
     Route: 065
  5. VINCRISTINE [Suspect]
     Active Substance: VINCRISTINE
     Indication: Enteropathy-associated T-cell lymphoma
     Dosage: UNK, CYCLE (6 CYCLES)
     Route: 065

REACTIONS (1)
  - Drug ineffective [Unknown]
